FAERS Safety Report 23808743 (Version 1)
Quarter: 2024Q2

REPORT INFORMATION
  Report Type: Spontaneous
  Country: US (occurrence: US)
  Receive Date: 20240502
  Receipt Date: 20240502
  Transmission Date: 20240716
  Serious: Yes (Other)
  Sender: FDA-Public Use
  Company Number: US-RECKITT BENCKISER HEALTHCARE INT LIMITED-RB-088572-2024

PATIENT
  Age: 9 Year
  Sex: Female

DRUGS (1)
  1. DELSYM [Suspect]
     Active Substance: DEXTROMETHORPHAN
     Indication: Cough
     Dosage: 5 MILLILITER, SINGLE
     Route: 048
     Dates: start: 20240424, end: 20240424

REACTIONS (3)
  - Hallucination [Unknown]
  - Screaming [Unknown]
  - Restlessness [Unknown]

NARRATIVE: CASE EVENT DATE: 20240424
